FAERS Safety Report 26048283 (Version 1)
Quarter: 2025Q4

REPORT INFORMATION
  Report Type: Other
  Country: JP (occurrence: JP)
  Receive Date: 20251114
  Receipt Date: 20251114
  Transmission Date: 20260119
  Serious: Yes (Life-Threatening, Other)
  Sender: PRASCO
  Company Number: JP-Prasco Laboratories-PRAS20250382

PATIENT

DRUGS (3)
  1. DEXAMETHASONE [Suspect]
     Active Substance: DEXAMETHASONE
     Indication: Plasma cell myeloma
     Dosage: 40 MG/BODY/DAY, ORALLY, DAYS 1, 4, 8, 11.
     Route: 048
  2. BORTEZOMIB [Suspect]
     Active Substance: BORTEZOMIB
     Indication: Plasma cell myeloma
     Dosage: 1.3 MG/M2, SUBCUTANEOUS INJECTION, DAYS 1, 4, 8, 11.
     Route: 058
  3. LENALIDOMIDE [Suspect]
     Active Substance: LENALIDOMIDE
     Indication: Plasma cell myeloma
     Dosage: 25 MG/BODY/DAY, ORALLY, DAYS 1-14.
     Route: 048

REACTIONS (1)
  - Sepsis [Unknown]
